FAERS Safety Report 18524633 (Version 1)
Quarter: 2020Q4

REPORT INFORMATION
  Report Type: Report from Study
  Country: CA (occurrence: CA)
  Receive Date: 20201119
  Receipt Date: 20201119
  Transmission Date: 20210114
  Serious: Yes (Other)
  Sender: FDA-Public Use
  Company Number: CA-TEVA-2020-CA-1849606

PATIENT
  Age: 18 Year
  Sex: Female

DRUGS (4)
  1. VITAMIN B12 [Concomitant]
     Active Substance: CYANOCOBALAMIN
  2. VITAMIN C [Concomitant]
     Active Substance: ASCORBIC ACID
  3. COPAXONE [Suspect]
     Active Substance: GLATIRAMER ACETATE
     Indication: MULTIPLE SCLEROSIS
     Dates: start: 20201028
  4. IRON [Concomitant]
     Active Substance: IRON

REACTIONS (8)
  - Nasopharyngitis [Not Recovered/Not Resolved]
  - Palpitations [Recovered/Resolved]
  - Wrong technique in product usage process [Unknown]
  - Oropharyngeal pain [Unknown]
  - Injection site pain [Unknown]
  - Panic attack [Unknown]
  - Blindness transient [Recovered/Resolved]
  - Deafness [Recovered/Resolved]

NARRATIVE: CASE EVENT DATE: 2020
